FAERS Safety Report 20430606 (Version 1)
Quarter: 2022Q1

REPORT INFORMATION
  Report Type: Spontaneous
  Country: US (occurrence: None)
  Receive Date: 20220203
  Receipt Date: 20220203
  Transmission Date: 20220423
  Serious: Yes (Death)
  Sender: FDA-Public Use
  Company Number: None

PATIENT
  Age: 23 Year
  Sex: Female
  Weight: 81.8 kg

DRUGS (1)
  1. TOCILIZUMAB [Suspect]
     Active Substance: TOCILIZUMAB
     Indication: COVID-19
     Dosage: FREQUENCY : ONCE;?
     Route: 042
     Dates: start: 20220120, end: 20220120

REACTIONS (10)
  - Caesarean section [None]
  - Maternal exposure during pregnancy [None]
  - Pupil fixed [None]
  - Ischaemic stroke [None]
  - Carotid artery occlusion [None]
  - Cerebral mass effect [None]
  - Brain herniation [None]
  - Areflexia [None]
  - Respiratory depression [None]
  - Brain death [None]

NARRATIVE: CASE EVENT DATE: 20220130
